FAERS Safety Report 9697006 (Version 1)
Quarter: 2013Q4

REPORT INFORMATION
  Report Type: Spontaneous
  Country: CA (occurrence: CA)
  Receive Date: 20131119
  Receipt Date: 20131119
  Transmission Date: 20140711
  Serious: Yes (Other)
  Sender: FDA-Public Use
  Company Number: CA-JNJFOC-20131017263

PATIENT
  Age: 57 Year
  Sex: Female
  Weight: 98 kg

DRUGS (3)
  1. BENADRYL [Suspect]
     Indication: HYPERSENSITIVITY
     Route: 048
  2. REMICADE [Concomitant]
     Indication: PSORIATIC ARTHROPATHY
     Route: 042
     Dates: start: 20130227, end: 20131004
  3. EPINEPHRINE [Concomitant]
     Indication: PREMEDICATION
     Route: 030

REACTIONS (5)
  - Oxygen saturation decreased [Recovering/Resolving]
  - Sensation of foreign body [Recovering/Resolving]
  - Off label use [Unknown]
  - Blood pressure decreased [Recovered/Resolved]
  - Periorbital oedema [Recovering/Resolving]
